FAERS Safety Report 5034234-2 (Version None)
Quarter: 2006Q2

REPORT INFORMATION
  Report Type: 
  Country: None (occurrence: None)
  Receive Date: 20060621
  Receipt Date: 20060606
  Transmission Date: 20061013
  Serious: No
  Sender: FDA-Public Use
  Company Number: 336268

PATIENT
  Age: 16 Year
  Sex: Male
  Weight: 65.3 kg

DRUGS (5)
  1. ACCUTANE [Suspect]
     Indication: ACNE
     Dosage: 40 MG DAILY ORAL
     Route: 048
     Dates: start: 19990612, end: 19990629
  2. CLARITIN-D [Suspect]
     Indication: SEASONAL ALLERGY
     Dosage: ORAL
     Route: 048
     Dates: start: 19960615
  3. OMNICEF [Suspect]
     Indication: SINUSITIS
     Dosage: ORAL
     Route: 048
     Dates: start: 19990628
  4. ACETAMINOPHEN [Concomitant]
  5. ADVIL [Concomitant]

REACTIONS (73)
  - ABDOMINAL PAIN [None]
  - ABDOMINAL PAIN UPPER [None]
  - AGGRESSION [None]
  - AMNESIA [None]
  - ANTINUCLEAR ANTIBODY POSITIVE [None]
  - ANXIETY [None]
  - AUTONOMIC NERVOUS SYSTEM IMBALANCE [None]
  - BACK PAIN [None]
  - BENIGN INTRACRANIAL HYPERTENSION [None]
  - BETA HAEMOLYTIC STREPTOCOCCAL INFECTION [None]
  - CD4 LYMPHOCYTES INCREASED [None]
  - CHEST PAIN [None]
  - COGNITIVE DISORDER [None]
  - CONVULSION [None]
  - COUGH [None]
  - CRYING [None]
  - CULTURE THROAT POSITIVE [None]
  - DEPRESSION [None]
  - DERMATITIS [None]
  - DIZZINESS [None]
  - DRUG INTERACTION [None]
  - DRUG LEVEL DECREASED [None]
  - DRY SKIN [None]
  - DYSARTHRIA [None]
  - DYSPNOEA [None]
  - ENCEPHALOPATHY [None]
  - FALL [None]
  - FATIGUE [None]
  - FIBROMYALGIA [None]
  - FRUSTRATION [None]
  - HEAD INJURY [None]
  - HEADACHE [None]
  - HYPOMAGNESAEMIA [None]
  - HYPOXIA [None]
  - IMMUNE SYSTEM DISORDER [None]
  - IMPETIGO [None]
  - IMPINGEMENT SYNDROME [None]
  - IRRITABILITY [None]
  - JOINT DISLOCATION [None]
  - LEARNING DISORDER [None]
  - LETHARGY [None]
  - MEMORY IMPAIRMENT [None]
  - MIGRAINE [None]
  - MOOD ALTERED [None]
  - MOVEMENT DISORDER [None]
  - MULTIPLE CHEMICAL SENSITIVITY [None]
  - MUSCLE FATIGUE [None]
  - MUSCLE TWITCHING [None]
  - MUSCULAR WEAKNESS [None]
  - MYALGIA [None]
  - NEUROTOXICITY [None]
  - PAIN IN EXTREMITY [None]
  - PAIN OF SKIN [None]
  - PALPITATIONS [None]
  - PANIC ATTACK [None]
  - PARONYCHIA [None]
  - RHINITIS ALLERGIC [None]
  - SINUS BRADYCARDIA [None]
  - SINUS TACHYCARDIA [None]
  - SKIN BURNING SENSATION [None]
  - SLEEP APNOEA SYNDROME [None]
  - SLUGGISHNESS [None]
  - SNORING [None]
  - SOMNOLENCE [None]
  - SUPRAVENTRICULAR EXTRASYSTOLES [None]
  - SYNCOPE [None]
  - SYNCOPE VASOVAGAL [None]
  - TENDONITIS [None]
  - TENSION [None]
  - TONSILLITIS [None]
  - UPPER RESPIRATORY TRACT INFECTION [None]
  - VOMITING [None]
  - WEIGHT INCREASED [None]
